FAERS Safety Report 8704777 (Version 2)
Quarter: 2012Q4

REPORT INFORMATION
  Report Type: 
  Country: BR (occurrence: BR)
  Receive Date: 20120803
  Receipt Date: 20121026
  Transmission Date: 20130627
  Serious: Yes (Hospitalization)
  Sender: FDA-Public Use
  Company Number: BR-ASTRAZENECA-2012SE52811

PATIENT
  Age: 76 Year
  Sex: Female
  Weight: 83 kg

DRUGS (2)
  1. NEXIUM [Suspect]
     Indication: GASTRITIS
     Route: 048
     Dates: start: 2007
  2. NEXIUM [Suspect]
     Indication: GASTRITIS
     Dosage: 40 MG, BID AS REQUIRED
     Route: 048
     Dates: start: 2007

REACTIONS (6)
  - Dacryostenosis acquired [Recovered/Resolved]
  - Gastritis [Unknown]
  - Abdominal pain [Recovered/Resolved]
  - Flatulence [Recovered/Resolved]
  - Drug ineffective [Unknown]
  - Off label use [Not Recovered/Not Resolved]
